FAERS Safety Report 6641622-7 (Version None)
Quarter: 2010Q1

REPORT INFORMATION
  Report Type: 
  Country: None (occurrence: None)
  Receive Date: 20100317
  Receipt Date: 20100317
  Transmission Date: 20100710
  Serious: Yes (Other)
  Sender: FDA-Public Use
  Company Number: None

PATIENT
  Age: 11 Year
  Sex: Female
  Weight: 43 kg

DRUGS (1)
  1. OXCARBAZEPINE [Suspect]
     Indication: EPILEPSY
     Dosage: 1 TAB AM, 1/2 TAB HS TWICE DAILY PO
     Route: 048
     Dates: start: 20100305

REACTIONS (2)
  - CONDITION AGGRAVATED [None]
  - CONVULSION [None]
